FAERS Safety Report 4774777-X (Version None)
Quarter: 2005Q3

REPORT INFORMATION
  Report Type: 
  Country: None (occurrence: None)
  Receive Date: 20050919
  Receipt Date: 20050912
  Transmission Date: 20060218
  Serious: Yes (Hospitalization, Other)
  Sender: FDA-Public Use
  Company Number: 2005-BP-15065RO

PATIENT
  Age: 45 Year
  Sex: Female
  Weight: 48.5 kg

DRUGS (3)
  1. PREDNISONE TAB [Suspect]
     Indication: CROHN'S DISEASE
     Dosage: HIGH OF 50 MG/D WITH TAPER, PO
     Route: 048
     Dates: start: 19970101, end: 19990704
  2. MERCAPTOPURINE [Concomitant]
  3. PREMARIN [Concomitant]

REACTIONS (8)
  - ALOPECIA [None]
  - DISTURBANCE IN ATTENTION [None]
  - INCREASED TENDENCY TO BRUISE [None]
  - INSOMNIA [None]
  - OSTEOPOROSIS [None]
  - SKIN ATROPHY [None]
  - SPINAL FRACTURE [None]
  - WEIGHT INCREASED [None]
